FAERS Safety Report 23099305 (Version 1)
Quarter: 2023Q4

REPORT INFORMATION
  Report Type: Spontaneous
  Country: US (occurrence: US)
  Receive Date: 20231024
  Receipt Date: 20231024
  Transmission Date: 20240110
  Serious: Yes (Life-Threatening, Hospitalization, Other)
  Sender: FDA-Public Use
  Company Number: US-MLMSERVICE-20231004-4580152-1

PATIENT
  Age: 44 Year
  Sex: Male

DRUGS (1)
  1. PREDNISONE [Suspect]
     Active Substance: PREDNISONE
     Indication: Pulmonary vasculitis
     Dosage: TAPER
     Route: 065

REACTIONS (7)
  - Sepsis [Unknown]
  - Renal failure [Unknown]
  - Pneumonia [Unknown]
  - Disease progression [Unknown]
  - Atypical mycobacterial infection [Unknown]
  - Respiratory syncytial virus infection [Unknown]
  - Bacteraemia [Unknown]
